FAERS Safety Report 14430208 (Version 1)
Quarter: 2018Q1

REPORT INFORMATION
  Report Type: Spontaneous
  Country: US (occurrence: US)
  Receive Date: 20180123
  Receipt Date: 20180123
  Transmission Date: 20180509
  Serious: Yes (Death, Hospitalization)
  Sender: FDA-Public Use
  Company Number: None

PATIENT
  Age: 84 Year
  Sex: Male

DRUGS (1)
  1. REVLIMID [Suspect]
     Active Substance: LENALIDOMIDE
     Indication: PLASMA CELL MYELOMA
     Dosage: 5MG QD FOR 21 DAYS ORAL
     Route: 048
     Dates: start: 20171031, end: 20180103

REACTIONS (1)
  - Pseudomonal sepsis [None]

NARRATIVE: CASE EVENT DATE: 20180101
